FAERS Safety Report 4439664-5 (Version None)
Quarter: 2004Q3

REPORT INFORMATION
  Report Type: 
  Country: None (occurrence: None)
  Receive Date: 20040831
  Receipt Date: 20040831
  Transmission Date: 20050211
  Serious: Yes (Death)
  Sender: FDA-Public Use
  Company Number: None

PATIENT
  Age: 64 Year
  Sex: Female
  Weight: 65.9984 kg

DRUGS (12)
  1. PACLITAXEL [Suspect]
     Indication: OVARIAN CANCER
     Dosage: 301 MG
     Dates: start: 20040406
  2. GEMCITABINE [Suspect]
     Dosage: 1376 MG
     Dates: start: 20040406
  3. GEMCITABINE [Suspect]
     Dosage: 1376 MG
     Dates: start: 20040413
  4. CARBOPLATIN [Suspect]
     Dates: start: 20040406
  5. LIPITOR [Concomitant]
  6. EFFEXOR [Concomitant]
  7. COUMADIN [Concomitant]
  8. MULTI-VITAMIN [Concomitant]
  9. ZOFRAN [Concomitant]
  10. COMPAZINE [Concomitant]
  11. DECADRON [Concomitant]
  12. ATIVAN [Concomitant]

REACTIONS (6)
  - ABDOMINAL PAIN [None]
  - CARDIO-RESPIRATORY ARREST [None]
  - CIRCULATORY COLLAPSE [None]
  - DIARRHOEA [None]
  - NAUSEA [None]
  - VOMITING [None]
